FAERS Safety Report 8344251-2 (Version None)
Quarter: 2012Q2

REPORT INFORMATION
  Report Type: 
  Country: None (occurrence: None)
  Receive Date: 20120508
  Receipt Date: 20110920
  Transmission Date: 20120825
  Serious: Yes (Hospitalization, Other)
  Sender: FDA-Public Use
  Company Number: US-BAYER-2011-091233

PATIENT
  Age: 22 Year
  Sex: Female
  Weight: 53.968 kg

DRUGS (9)
  1. METRONIDAZOLE [Concomitant]
  2. HYDROXYZINE [Concomitant]
     Dosage: 25 MG, PRN
     Route: 048
  3. YAZ [Suspect]
     Indication: ORAL CONTRACEPTION
     Dosage: UNK
     Dates: start: 20080801, end: 20090801
  4. HYDRALAZINE HCL [Concomitant]
  5. CHOLESTYRAMINE [Concomitant]
     Dosage: UNK UNK, BID
     Route: 048
  6. LEVAQUIN [Concomitant]
  7. CHOLESTYRAMINE [Concomitant]
  8. PROMETHAZINE [Concomitant]
  9. HYDROCODONE BITARTRATE [Concomitant]

REACTIONS (8)
  - JAUNDICE [None]
  - PANCREATITIS ACUTE [None]
  - BILE DUCT OBSTRUCTION [None]
  - PRURITUS [None]
  - GALLBLADDER DISORDER [None]
  - CHOLECYSTITIS CHRONIC [None]
  - CHOLELITHIASIS [None]
  - ABDOMINAL PAIN [None]
